FAERS Safety Report 25870031 (Version 1)
Quarter: 2025Q4

REPORT INFORMATION
  Report Type: Spontaneous
  Country: EU (occurrence: EU)
  Receive Date: 20251001
  Receipt Date: 20251001
  Transmission Date: 20260118
  Serious: Yes (Life-Threatening, Other)
  Sender: SANDOZ
  Company Number: EU-ASPEN-GLO2025FR008897

PATIENT
  Age: 61 Year
  Sex: Male
  Weight: 82 kg

DRUGS (6)
  1. AMOXICILLIN\CLAVULANIC ACID [Suspect]
     Active Substance: AMOXICILLIN\CLAVULANIC ACID
     Indication: Antibiotic prophylaxis
     Dosage: 2 G 1 DOSAGE TOTAL
     Route: 042
     Dates: start: 20250912, end: 20250912
  2. ATRACURIUM [Suspect]
     Active Substance: ATRACURIUM
     Indication: Anaesthesia
     Dosage: 45 MG  1 DOSAGE TOTAL
     Route: 042
     Dates: start: 20250912, end: 20250912
  3. DECADRON (DEXAMETHASONE SODIUM PHOSPHATE) [Suspect]
     Active Substance: DEXAMETHASONE SODIUM PHOSPHATE
     Indication: Anaesthesia
     Dosage: 8 MG 1 DOSAGE TOTAL
     Route: 042
     Dates: start: 20250912, end: 20250912
  4. KETAMINE [Suspect]
     Active Substance: KETAMINE
     Indication: Anaesthesia
     Dosage: 40 MG 1 DOSAGE TOTAL
     Route: 042
     Dates: start: 20250912, end: 20250912
  5. LIDOCAINE HYDROCHLORIDE [Suspect]
     Active Substance: LIDOCAINE HYDROCHLORIDE
     Indication: Anaesthesia
     Dosage: 200 MG 1 DOSAGE TOTAL
     Route: 042
     Dates: start: 20250912, end: 20250912
  6. SUFENTANIL [Suspect]
     Active Substance: SUFENTANIL
     Indication: Anaesthesia
     Dosage: 15 UG 1 DOSAGE TOTA
     Route: 042
     Dates: start: 20250912, end: 20250912

REACTIONS (1)
  - Anaphylactic shock [Recovered/Resolved]

NARRATIVE: CASE EVENT DATE: 20250912
